FAERS Safety Report 20469158 (Version 1)
Quarter: 2022Q1

REPORT INFORMATION
  Report Type: Spontaneous
  Country: JP (occurrence: JP)
  Receive Date: 20220214
  Receipt Date: 20220214
  Transmission Date: 20220423
  Serious: Yes (Hospitalization)
  Sender: FDA-Public Use
  Company Number: JP-GLAXOSMITHKLINE-JP2022JPN021775

PATIENT
  Age: 5 Decade
  Sex: Female

DRUGS (28)
  1. ZOVIRAX [Suspect]
     Active Substance: ACYCLOVIR
     Dosage: 200 MG PER DAY
  2. LETERMOVIR [Interacting]
     Active Substance: LETERMOVIR
     Indication: Antiviral prophylaxis
     Dosage: 480 MG PER DAY
     Route: 041
  3. LETERMOVIR [Interacting]
     Active Substance: LETERMOVIR
     Dosage: 480 MG PER DAY
  4. VORICONAZOLE [Interacting]
     Active Substance: VORICONAZOLE
     Indication: Antifungal prophylaxis
     Dosage: 400 MG PER DAY
  5. VORICONAZOLE [Interacting]
     Active Substance: VORICONAZOLE
     Dosage: 600 MG PER DAY
  6. VORICONAZOLE [Interacting]
     Active Substance: VORICONAZOLE
     Dosage: 400 MG PER DAY
  7. VORICONAZOLE [Interacting]
     Active Substance: VORICONAZOLE
     Dosage: 200 MG PER DAY
  8. TACROLIMUS [Concomitant]
     Active Substance: TACROLIMUS
     Indication: Prophylaxis against graft versus host disease
     Dosage: UNK
     Route: 042
  9. TACROLIMUS [Concomitant]
     Active Substance: TACROLIMUS
     Indication: Prophylaxis against graft versus host disease
     Dosage: 1 MG PER DAY
  10. TACROLIMUS [Concomitant]
     Active Substance: TACROLIMUS
     Dosage: 0.7 MG PER DAY
  11. FLUCONAZOLE [Concomitant]
     Active Substance: FLUCONAZOLE
     Indication: Antifungal prophylaxis
     Dosage: 200 MG PER DAY
  12. PREDNISOLONE [Concomitant]
     Active Substance: PREDNISOLONE
     Indication: Graft versus host disease in skin
     Dosage: 25 MG PER DAY
  13. PREDNISOLONE [Concomitant]
     Active Substance: PREDNISOLONE
     Dosage: 20 MG PER DAY
  14. PREDNISOLONE [Concomitant]
     Active Substance: PREDNISOLONE
     Dosage: 7.5 MG PER DAY
  15. PREDNISOLONE [Concomitant]
     Active Substance: PREDNISOLONE
     Dosage: 5 MG PER DAY
  16. MICAFUNGIN SODIUM [Concomitant]
     Active Substance: MICAFUNGIN SODIUM
     Indication: Antifungal prophylaxis
     Dosage: 50 MG PER DAY
     Route: 041
  17. BUDESONIDE [Concomitant]
     Active Substance: BUDESONIDE
     Dosage: 9 MG PER DAY
  18. BUDESONIDE [Concomitant]
     Active Substance: BUDESONIDE
     Dosage: 6 MG PER DAY
  19. AMLODIPINE BESYLATE [Concomitant]
     Active Substance: AMLODIPINE BESYLATE
     Dosage: 5 MG PER DAY
  20. LANSOPRAZOLE [Concomitant]
     Active Substance: LANSOPRAZOLE
     Dosage: 30 MG PER DAY
  21. URSODIOL [Concomitant]
     Active Substance: URSODIOL
     Dosage: 600 MG PER DAY
  22. URSODIOL [Concomitant]
     Active Substance: URSODIOL
     Dosage: 300 MG PER DAY
  23. POTASSIUM ASPARTATE ANHYDROUS [Concomitant]
     Active Substance: POTASSIUM ASPARTATE ANHYDROUS
     Dosage: 1800 MG PER DAY
  24. ROSUVASTATIN CALCIUM [Concomitant]
     Active Substance: ROSUVASTATIN CALCIUM
     Dosage: 5 MG PER DAY
  25. ZOPICLONE [Concomitant]
     Active Substance: ZOPICLONE
     Dosage: 1.875 MG PER DAY
  26. ELTROMBOPAG OLAMINE [Concomitant]
     Active Substance: ELTROMBOPAG OLAMINE
     Dosage: 25 MG PER DAY
  27. LEVOFLOXACIN HEMIHYDRATE [Concomitant]
     Active Substance: LEVOFLOXACIN
     Indication: Infection
     Dosage: 500 MG PER DAY
  28. SODIUM HYALURONATE OPHTHALMIC SOLUTION [Concomitant]
     Indication: Visual impairment
     Dosage: UNK

REACTIONS (11)
  - Decreased appetite [Unknown]
  - Dehydration [Unknown]
  - Anaemia [Unknown]
  - Visual impairment [Unknown]
  - Taste disorder [Unknown]
  - Infection [Unknown]
  - Liver disorder [Unknown]
  - Hepatic function abnormal [Unknown]
  - Drug level increased [Unknown]
  - Drug interaction [Unknown]
  - Prescribed underdose [Unknown]
